FAERS Safety Report 18285202 (Version 6)
Quarter: 2021Q3

REPORT INFORMATION
  Report Type: Spontaneous
  Country: US (occurrence: US)
  Receive Date: 20200918
  Receipt Date: 20210809
  Transmission Date: 20211014
  Serious: Yes (Other)
  Sender: FDA-Public Use
  Company Number: US-PFIZER INC-2020360197

PATIENT
  Age: 55 Year
  Sex: Female

DRUGS (2)
  1. RELPAX [Suspect]
     Active Substance: ELETRIPTAN HYDROBROMIDE
     Indication: MIGRAINE
  2. RELPAX [Suspect]
     Active Substance: ELETRIPTAN HYDROBROMIDE
     Indication: HEADACHE
     Dosage: 40 MG, AS NEEDED(1 TAB AT ONSET OF HEADACHE, MAY REPEAT IF NEEDED AFTER 2 HRS LIMIT IS 2 IN 24 HRS)
     Dates: start: 20210729

REACTIONS (4)
  - Hypoacusis [Unknown]
  - Somnolence [Unknown]
  - Near death experience [Unknown]
  - COVID-19 [Unknown]
